FAERS Safety Report 4787523-0 (Version None)
Quarter: 2005Q4

REPORT INFORMATION
  Report Type: 
  Country: None (occurrence: None)
  Receive Date: 20051003
  Receipt Date: 20050923
  Transmission Date: 20060501
  Serious: Yes (Hospitalization)
  Sender: FDA-Public Use
  Company Number: 200508332

PATIENT
  Age: 59 Year
  Sex: Male
  Weight: 63.05 kg

DRUGS (3)
  1. BOTOX [Suspect]
     Indication: MUSCLE SPASTICITY
     Dates: start: 20050803, end: 20050803
  2. MS CONTIN [Concomitant]
  3. NEXIUM [Concomitant]

REACTIONS (15)
  - ANXIETY [None]
  - ASTHENIA [None]
  - BACK PAIN [None]
  - DIZZINESS [None]
  - DYSPNOEA [None]
  - DYSSTASIA [None]
  - HEADACHE [None]
  - IATROGENIC INJURY [None]
  - INFLUENZA LIKE ILLNESS [None]
  - INJECTION SITE HAEMORRHAGE [None]
  - NAUSEA [None]
  - OVERDOSE [None]
  - PROCEDURAL COMPLICATION [None]
  - PYREXIA [None]
  - VENOUS INJURY [None]
